FAERS Safety Report 8927930 (Version 1)
Quarter: 2012Q4

REPORT INFORMATION
  Report Type: Spontaneous
  Country: US (occurrence: None)
  Receive Date: 20121126
  Receipt Date: 20121126
  Transmission Date: 20130627
  Serious: Yes (Death)
  Sender: FDA-Public Use
  Company Number: None

PATIENT
  Age: 64 None
  Sex: Male
  Weight: 68.2 kg

DRUGS (1)
  1. IRON SUCROSE [Suspect]
     Indication: ANEMIA
     Route: 042
     Dates: start: 20121108, end: 20121108

REACTIONS (3)
  - Hypotension [None]
  - Cardio-respiratory arrest [None]
  - Bradycardia [None]
